FAERS Safety Report 5328317-7 (Version None)
Quarter: 2007Q2

REPORT INFORMATION
  Report Type: 
  Country: None (occurrence: None)
  Receive Date: 20070518
  Receipt Date: 20070508
  Transmission Date: 20071010
  Serious: Yes (Hospitalization)
  Sender: FDA-Public Use
  Company Number: PHHO2007JP07850

PATIENT
  Age: 86 Year
  Sex: Female

DRUGS (3)
  1. LIVALO [Suspect]
     Indication: HYPERCHOLESTEROLAEMIA
     Dosage: 1 MG DAY
     Route: 048
     Dates: start: 20050323, end: 20060326
  2. LIVALO [Suspect]
     Dosage: 2 MG DAY
     Dates: start: 20060327, end: 20070204
  3. DIOVAN [Suspect]
     Dosage: 80 MG, UNK
     Route: 048

REACTIONS (4)
  - CEREBELLAR INFARCTION [None]
  - DECREASED APPETITE [None]
  - DIZZINESS [None]
  - VOMITING [None]
